FAERS Safety Report 10334096 (Version 1)
Quarter: 2014Q3

REPORT INFORMATION
  Report Type: Spontaneous
  Country: US (occurrence: None)
  Receive Date: 20140718
  Receipt Date: 20140718
  Transmission Date: 20150326
  Serious: Yes (Death)
  Sender: FDA-Public Use
  Company Number: 1713747-2013-99924

PATIENT
  Sex: Male

DRUGS (11)
  1. LIBERTY CYCLER TUBING SET [Concomitant]
  2. VITAMIN D [Concomitant]
     Active Substance: CHOLECALCIFEROL
  3. MEGACE [Concomitant]
     Active Substance: MEGESTROL ACETATE
  4. RENVELA [Concomitant]
     Active Substance: SEVELAMER CARBONATE
  5. DELFLEX [Suspect]
     Active Substance: CALCIUM CHLORIDE\DEXTROSE MONOHYDRATE\MAGNESIUM CHLORIDE\SODIUM CHLORIDE\SODIUM LACTATE
     Indication: PERITONEAL DIALYSIS
     Dosage: UNKNOWN
  6. COREG [Concomitant]
     Active Substance: CARVEDILOL
  7. CIALIS [Concomitant]
     Active Substance: TADALAFIL
  8. LIBERTY CYCLER [Concomitant]
     Active Substance: DEVICE
  9. REGLAN [Concomitant]
     Active Substance: METOCLOPRAMIDE HYDROCHLORIDE
  10. NEURONTIN [Concomitant]
     Active Substance: GABAPENTIN
  11. MAG-OXIDE [Concomitant]

REACTIONS (4)
  - Cardiac arrest [None]
  - Unresponsive to stimuli [None]
  - Death [None]
  - Procedural complication [None]

NARRATIVE: CASE EVENT DATE: 20130701
